FAERS Safety Report 15515846 (Version 3)
Quarter: 2022Q1

REPORT INFORMATION
  Report Type: Spontaneous
  Country: CA (occurrence: CA)
  Receive Date: 20181017
  Receipt Date: 20220310
  Transmission Date: 20220423
  Serious: Yes (Life-Threatening, Hospitalization, Other)
  Sender: FDA-Public Use
  Company Number: CA-AUROBINDO-AUR-APL-2018-049750

PATIENT
  Age: 54 Year
  Sex: Female

DRUGS (25)
  1. ALENDRONIC ACID [Suspect]
     Active Substance: ALENDRONIC ACID
     Indication: Osteogenesis imperfecta
     Dosage: UNK
     Route: 065
  2. ALENDRONIC ACID [Suspect]
     Active Substance: ALENDRONIC ACID
     Indication: Bone loss
  3. RISEDRONATE SODIUM [Suspect]
     Active Substance: RISEDRONATE SODIUM
     Indication: Osteogenesis imperfecta
     Dosage: 5 MILLIGRAM
     Route: 065
     Dates: start: 201403, end: 201410
  4. RISEDRONATE SODIUM [Suspect]
     Active Substance: RISEDRONATE SODIUM
     Indication: Bone loss
  5. RISEDRONATE SODIUM [Suspect]
     Active Substance: RISEDRONATE SODIUM
     Indication: Atypical femur fracture
  6. ACTONEL [Suspect]
     Active Substance: RISEDRONATE SODIUM
     Indication: Osteogenesis imperfecta
     Dosage: UNK
     Route: 065
  7. ACTONEL [Suspect]
     Active Substance: RISEDRONATE SODIUM
     Indication: Bone loss
  8. ACTONEL [Suspect]
     Active Substance: RISEDRONATE SODIUM
     Indication: Osteogenesis imperfecta
     Dosage: UNK
     Route: 065
  9. ACTONEL [Suspect]
     Active Substance: RISEDRONATE SODIUM
     Indication: Bone loss
  10. FOSAMAX [Suspect]
     Active Substance: ALENDRONATE SODIUM
     Indication: Osteogenesis imperfecta
     Dosage: LONG-TERM BISPHOSPHONATE USE
     Route: 065
  11. FOSAMAX [Suspect]
     Active Substance: ALENDRONATE SODIUM
     Indication: Bone loss
  12. FOSAMAX [Suspect]
     Active Substance: ALENDRONATE SODIUM
     Indication: Patella fracture
  13. PAMIDRONATE DISODIUM [Suspect]
     Active Substance: PAMIDRONATE DISODIUM
     Indication: Plasma cell myeloma
     Dosage: 60 MILLIGRAM
     Route: 042
  14. PAMIDRONATE DISODIUM [Suspect]
     Active Substance: PAMIDRONATE DISODIUM
     Dosage: 90 MILLIGRAM, EVERY MONTH
     Route: 042
  15. VITAMIN D [Suspect]
     Active Substance: VITAMIN D NOS
     Indication: Menopausal symptoms
     Dosage: UNK
     Route: 065
  16. VITAMIN D [Suspect]
     Active Substance: VITAMIN D NOS
     Indication: Osteogenesis imperfecta
  17. ESTROGENS [Concomitant]
     Active Substance: ESTROGENS
     Indication: Menopausal symptoms
     Dosage: 0.025 MILLIGRAM, TWO TIMES A WEEK
     Route: 062
  18. ESTROGENS [Concomitant]
     Active Substance: ESTROGENS
     Indication: Osteogenesis imperfecta
  19. CALCIUM [Concomitant]
     Active Substance: CALCIUM
     Indication: Menopausal symptoms
     Dosage: UNK
     Route: 065
  20. CALCIUM [Concomitant]
     Active Substance: CALCIUM
     Indication: Osteogenesis imperfecta
  21. CALCIUM [Concomitant]
     Active Substance: CALCIUM
     Indication: Supplementation therapy
  22. BORTEZOMIB [Concomitant]
     Active Substance: BORTEZOMIB
     Indication: Plasma cell myeloma
     Dosage: UNK
     Route: 065
  23. CYCLOPHOSPHAMIDE [Concomitant]
     Active Substance: CYCLOPHOSPHAMIDE
     Indication: Plasma cell myeloma
     Dosage: UNK
     Route: 065
  24. DEXAMETHASONE [Concomitant]
     Active Substance: DEXAMETHASONE
     Indication: Plasma cell myeloma
     Dosage: 40 MILLIGRAM, EVERY WEEK
     Route: 065
  25. ERGOCALCIFEROL [Concomitant]
     Active Substance: ERGOCALCIFEROL
     Indication: Supplementation therapy
     Dosage: UNK
     Route: 065

REACTIONS (2)
  - Atypical femur fracture [Recovered/Resolved]
  - Plasma cell myeloma [Recovered/Resolved]

NARRATIVE: CASE EVENT DATE: 20141001
